FAERS Safety Report 12931267 (Version 1)
Quarter: 2016Q4

REPORT INFORMATION
  Report Type: Spontaneous
  Country: US (occurrence: US)
  Receive Date: 20161110
  Receipt Date: 20161110
  Transmission Date: 20170207
  Serious: No
  Sender: FDA-Public Use
  Company Number: US-JAZZ-2016-US-018059

PATIENT
  Sex: Female

DRUGS (40)
  1. ADVAIR HFA [Concomitant]
     Active Substance: FLUTICASONE PROPIONATE\SALMETEROL XINAFOATE
  2. CALCIUM [Concomitant]
     Active Substance: CALCIUM
  3. IBUPROFEN. [Concomitant]
     Active Substance: IBUPROFEN
  4. VITAMIN B12 [Concomitant]
     Active Substance: CYANOCOBALAMIN
  5. ALLERGY SHOTS                           /00000402/ [Concomitant]
  6. BIOTIN [Concomitant]
     Active Substance: BIOTIN
  7. ADDERALL XR [Concomitant]
     Active Substance: AMPHETAMINE ASPARTATE\AMPHETAMINE SULFATE\DEXTROAMPHETAMINE SACCHARATE\DEXTROAMPHETAMINE SULFATE
  8. FERROUS SULFATE. [Concomitant]
     Active Substance: FERROUS SULFATE
  9. FOLIC ACID. [Concomitant]
     Active Substance: FOLIC ACID
  10. LEVOTHYROXINE. [Concomitant]
     Active Substance: LEVOTHYROXINE
  11. NIFEDIPINE. [Concomitant]
     Active Substance: NIFEDIPINE
  12. VITAMIN D3 [Concomitant]
     Active Substance: CHOLECALCIFEROL
  13. LOPERAMIDE [Concomitant]
     Active Substance: LOPERAMIDE
  14. PROPRANOLOL ER [Concomitant]
  15. BENADRYL [Concomitant]
     Active Substance: DIPHENHYDRAMINE HYDROCHLORIDE
  16. POTASSIUM CL ER [Concomitant]
     Active Substance: POTASSIUM CHLORIDE
  17. QVAR [Concomitant]
     Active Substance: BECLOMETHASONE DIPROPIONATE
  18. FLONASE                            /00908302/ [Concomitant]
     Active Substance: MOMETASONE FUROATE
  19. TIZANIDINE HCL [Concomitant]
     Active Substance: TIZANIDINE HYDROCHLORIDE
  20. SPIRIVA [Concomitant]
     Active Substance: TIOTROPIUM BROMIDE MONOHYDRATE
  21. ABILIFY [Concomitant]
     Active Substance: ARIPIPRAZOLE
  22. CLONAZEPAM. [Concomitant]
     Active Substance: CLONAZEPAM
  23. COENZYME Q10 [Concomitant]
     Active Substance: UBIDECARENONE
  24. FUROSEMIDE. [Concomitant]
     Active Substance: FUROSEMIDE
  25. XYREM [Suspect]
     Active Substance: SODIUM OXYBATE
     Indication: NARCOLEPSY
     Dosage: 4.5 G, BID
     Route: 048
     Dates: start: 201307
  26. KRILL OIL [Concomitant]
     Active Substance: DIETARY SUPPLEMENT
  27. LANSOPRAZOLE DR [Concomitant]
  28. SINGULAIR [Concomitant]
     Active Substance: MONTELUKAST SODIUM
  29. ZYRTEC [Concomitant]
     Active Substance: CETIRIZINE HYDROCHLORIDE
  30. QNASL [Concomitant]
     Active Substance: BECLOMETHASONE DIPROPIONATE
  31. ZINC GLUCONATE [Concomitant]
     Active Substance: ZINC GLUCONATE
  32. LEVOCETIRIZINE [Concomitant]
     Active Substance: LEVOCETIRIZINE
  33. TRAVATAN Z [Concomitant]
     Active Substance: TRAVOPROST
  34. CALCIUM CITRATE PLUS [Concomitant]
  35. XYREM [Suspect]
     Active Substance: SODIUM OXYBATE
     Indication: CATAPLEXY
  36. PRISTIQ EXTENDED-RELEASE [Concomitant]
     Active Substance: DESVENLAFAXINE SUCCINATE
  37. VITAMIN B12 TR                       /00056201/ [Concomitant]
  38. FEXOFENADINE HCL [Concomitant]
     Active Substance: FEXOFENADINE HYDROCHLORIDE
  39. LOSARTAN POTASSIUM. [Concomitant]
     Active Substance: LOSARTAN POTASSIUM
  40. PROAIR HFA [Concomitant]
     Active Substance: ALBUTEROL SULFATE

REACTIONS (1)
  - Asthma [Recovering/Resolving]
